FAERS Safety Report 9388121 (Version 1)
Quarter: 2013Q3

REPORT INFORMATION
  Report Type: Spontaneous
  Country: US (occurrence: US)
  Receive Date: 20130708
  Receipt Date: 20130708
  Transmission Date: 20140515
  Serious: Yes (Hospitalization)
  Sender: FDA-Public Use
  Company Number: US-GLAXOSMITHKLINE-A1029101A

PATIENT
  Age: 73 Year
  Sex: Female

DRUGS (4)
  1. SEREVENT [Suspect]
     Indication: ASTHMA
     Dosage: 1PUFF TWICE PER DAY
     Route: 055
     Dates: start: 201211
  2. PROAIR HFA [Concomitant]
  3. TRIAMCINOLONE CREAM [Concomitant]
  4. CLOBETASOL PROPIONATE CREAM [Concomitant]

REACTIONS (6)
  - Pneumothorax [Recovered/Resolved]
  - Lung disorder [Recovered/Resolved]
  - Pneumonitis [Recovered/Resolved]
  - Rash [Not Recovered/Not Resolved]
  - Pruritus [Not Recovered/Not Resolved]
  - Biopsy lung [Recovered/Resolved]
